FAERS Safety Report 13639190 (Version 1)
Quarter: 2017Q2

REPORT INFORMATION
  Report Type: Spontaneous
  Country: US (occurrence: US)
  Receive Date: 20170609
  Receipt Date: 20170609
  Transmission Date: 20170830
  Serious: No
  Sender: FDA-Public Use
  Company Number: US-ROCHE-722107

PATIENT
  Sex: Male

DRUGS (2)
  1. KLONOPIN [Suspect]
     Active Substance: CLONAZEPAM
     Indication: PRODUCT USED FOR UNKNOWN INDICATION
     Dosage: DATES OF USE REPORTED AS 12 YEARS
     Route: 048
  2. NARDIL [Concomitant]
     Active Substance: PHENELZINE SULFATE
     Route: 065

REACTIONS (2)
  - Orgasm abnormal [Not Recovered/Not Resolved]
  - Libido decreased [Not Recovered/Not Resolved]
